FAERS Safety Report 17764539 (Version 1)
Quarter: 2020Q2

REPORT INFORMATION
  Report Type: Spontaneous
  Country: CA (occurrence: CA)
  Receive Date: 20200511
  Receipt Date: 20200511
  Transmission Date: 20200714
  Serious: Yes (Other)
  Sender: FDA-Public Use
  Company Number: CA-ROCHE-2596642

PATIENT
  Age: 65 Year
  Sex: Female
  Weight: 36 kg

DRUGS (6)
  1. GARLIC [ALLIUM SATIVUM] [Concomitant]
     Active Substance: GARLIC
  2. OMEGA-3 [DOCOSAHEXAENOIC ACID;EICOSAPENTAENOIC ACID] [Concomitant]
     Active Substance: DOCONEXENT\ICOSAPENT
  3. VITAMIN C [Concomitant]
     Active Substance: ASCORBIC ACID
  4. PERINDOPRIL/INDAPAMIDE [Concomitant]
     Active Substance: INDAPAMIDE\PERINDOPRIL
  5. RITUXAN [Suspect]
     Active Substance: RITUXIMAB
     Indication: LYMPHOMA
     Route: 065
  6. AMITRIPTYLINE [Concomitant]
     Active Substance: AMITRIPTYLINE

REACTIONS (7)
  - Abdominal distension [Unknown]
  - Injection site reaction [Unknown]
  - Erythema [Unknown]
  - Injection site erythema [Unknown]
  - Skin swelling [Unknown]
  - Pain [Unknown]
  - Sleep disorder [Unknown]
